FAERS Safety Report 8980299 (Version 1)
Quarter: 2012Q4

REPORT INFORMATION
  Report Type: 
  Country: AU (occurrence: AU)
  Receive Date: 20121221
  Receipt Date: 20121221
  Transmission Date: 20130627
  Serious: Yes (Other)
  Sender: FDA-Public Use
  Company Number: PHHY2012AU109926

PATIENT
  Age: 45 Year
  Sex: Male
  Weight: 92.5 kg

DRUGS (4)
  1. CLOZARIL [Suspect]
     Indication: SCHIZOPHRENIA
     Dosage: 400 mg, Daily
     Route: 048
     Dates: start: 201002
  2. DIAZEPAM [Concomitant]
     Indication: TREMOR
     Dosage: 7.5 mg, (2.5 mg nocte and 5 mg mane)
     Route: 048
  3. QUETIAPINE [Concomitant]
     Dosage: 700 mg, (300 mg nocte and 400 mg mane)
     Route: 048
  4. DOXEPIN [Concomitant]
     Dosage: 300 mg, nocte
     Route: 048

REACTIONS (3)
  - Lymphocyte count decreased [Not Recovered/Not Resolved]
  - Hepatitis C [Not Recovered/Not Resolved]
  - Antipsychotic drug level decreased [Unknown]
